FAERS Safety Report 8100484-1 (Version None)
Quarter: 2012Q1

REPORT INFORMATION
  Report Type: 
  Country: None (occurrence: None)
  Receive Date: 20120129
  Receipt Date: 20111107
  Transmission Date: 20120608
  Serious: No
  Sender: FDA-Public Use
  Company Number: US-ABBOTT-11P-163-0873188-00

PATIENT
  Sex: Male
  Weight: 81.72 kg

DRUGS (8)
  1. SIMVASTATIN [Concomitant]
     Indication: BLOOD CHOLESTEROL INCREASED
  2. FLEXOCORT INHALER [Concomitant]
     Indication: ASTHMA
     Dates: start: 20110801
  3. ASPIRIN [Concomitant]
     Indication: CARDIOVASCULAR EVENT PROPHYLAXIS
  4. HUMIRA [Suspect]
     Indication: ANKYLOSING SPONDYLITIS
     Dates: start: 20110601
  5. AMLODIPINE [Concomitant]
     Indication: HYPERTENSION
  6. PRE-AIRE HFA INHALER [Concomitant]
     Indication: ASTHMA
     Dates: start: 20110801
  7. METOPROLOL TARTRATE [Concomitant]
     Indication: HYPERTENSION
  8. OMEPRAZOLE [Concomitant]
     Indication: GASTRIC DISORDER

REACTIONS (6)
  - ASTHMA [None]
  - ARTHRALGIA [None]
  - GASTRIC DISORDER [None]
  - BLOOD PRESSURE DECREASED [None]
  - DIZZINESS [None]
  - RIGHT VENTRICULAR HYPERTROPHY [None]
